FAERS Safety Report 10136464 (Version 1)
Quarter: 2014Q2

REPORT INFORMATION
  Report Type: Spontaneous
  Country: US (occurrence: US)
  Receive Date: 20140429
  Receipt Date: 20140429
  Transmission Date: 20141212
  Serious: No
  Sender: FDA-Public Use
  Company Number: US-BAYER-2014-062659

PATIENT
  Age: 58 Year
  Sex: Female

DRUGS (1)
  1. ALEVE TABLET [Suspect]
     Indication: BACK PAIN
     Dosage: 2 DF, UNK
     Route: 048

REACTIONS (3)
  - Drug ineffective [None]
  - Extra dose administered [None]
  - Nausea [Not Recovered/Not Resolved]
